FAERS Safety Report 23381264 (Version 1)
Quarter: 2024Q1

REPORT INFORMATION
  Report Type: Spontaneous
  Country: US (occurrence: US)
  Receive Date: 20240109
  Receipt Date: 20240109
  Transmission Date: 20240410
  Serious: Yes (Other)
  Sender: FDA-Public Use
  Company Number: US-TAKEDA-2024TUS002033

PATIENT
  Age: 55 Year
  Sex: Female

DRUGS (1)
  1. TRINTELLIX [Suspect]
     Active Substance: VORTIOXETINE HYDROBROMIDE
     Indication: Major depression
     Dosage: UNK
     Route: 065

REACTIONS (29)
  - Hyperprolactinaemia [Unknown]
  - Anhedonia [Unknown]
  - Insomnia [Unknown]
  - Hypersomnia [Unknown]
  - Psychomotor hyperactivity [Unknown]
  - Psychomotor retardation [Unknown]
  - Fatigue [Unknown]
  - Asthenia [Unknown]
  - Negative thoughts [Unknown]
  - Anxiety [Unknown]
  - Self esteem inflated [Unknown]
  - Grandiosity [Unknown]
  - Logorrhoea [Unknown]
  - Tachyphrenia [Unknown]
  - Distractibility [Unknown]
  - Delusion [Unknown]
  - Disorganised speech [Unknown]
  - Panic attack [Unknown]
  - Restlessness [Unknown]
  - Hyperarousal [Unknown]
  - Energy increased [Unknown]
  - Weight decreased [Unknown]
  - Hyperlipidaemia [Unknown]
  - Hyperglycaemia [Unknown]
  - Irritability [Unknown]
  - Sexual dysfunction [Unknown]
  - Weight increased [Unknown]
  - Nausea [Unknown]
  - Vomiting [Unknown]
